FAERS Safety Report 5929646-6 (Version None)
Quarter: 2008Q4

REPORT INFORMATION
  Report Type: 
  Country: None (occurrence: None)
  Receive Date: 20081024
  Receipt Date: 20081022
  Transmission Date: 20090506
  Serious: Yes (Hospitalization)
  Sender: FDA-Public Use
  Company Number: FR-WYE-G02409708

PATIENT
  Sex: Female

DRUGS (4)
  1. TAZOCILLINE [Suspect]
     Indication: URINARY TRACT INFECTION
     Route: 042
     Dates: start: 20080920, end: 20080925
  2. PREVISCAN [Suspect]
     Route: 048
     Dates: start: 20080928, end: 20080929
  3. PREVISCAN [Suspect]
     Route: 048
     Dates: end: 20080923
  4. PREVISCAN [Suspect]
     Route: 048
     Dates: start: 20080924, end: 20080927

REACTIONS (2)
  - HAEMATURIA [None]
  - INTERNATIONAL NORMALISED RATIO INCREASED [None]
